FAERS Safety Report 16379691 (Version 1)
Quarter: 2019Q2

REPORT INFORMATION
  Report Type: Spontaneous
  Country: US (occurrence: US)
  Receive Date: 20190531
  Receipt Date: 20190531
  Transmission Date: 20190711
  Serious: No
  Sender: FDA-Public Use
  Company Number: US-GLAXOSMITHKLINE-US2019GSK038863

PATIENT

DRUGS (1)
  1. ROPINIROLE. [Suspect]
     Active Substance: ROPINIROLE

REACTIONS (1)
  - Drug hypersensitivity [Unknown]
